FAERS Safety Report 18048704 (Version 1)
Quarter: 2020Q3

REPORT INFORMATION
  Report Type: Spontaneous
  Country: US (occurrence: US)
  Receive Date: 20200721
  Receipt Date: 20200721
  Transmission Date: 20201103
  Serious: No
  Sender: FDA-Public Use
  Company Number: US-GILEAD-2020-0484148

PATIENT
  Sex: Male

DRUGS (4)
  1. SOFOSBUVIR;VELPATASVIR [Suspect]
     Active Substance: SOFOSBUVIR\VELPATASVIR
     Indication: CHRONIC HEPATITIS C
     Dosage: 1 DOSAGE FORM, QD
     Route: 048
  2. ASPIRIN [ACETYLSALICYLIC ACID] [Concomitant]
     Active Substance: ASPIRIN
  3. MCT OIL [COCOS NUCIFERA OIL] [Concomitant]
  4. ECHINACEA [ECHINACEA SPP.] [Concomitant]

REACTIONS (4)
  - Unemployment [Unknown]
  - Peripheral swelling [Unknown]
  - Impaired work ability [Unknown]
  - Depression [Not Recovered/Not Resolved]
